FAERS Safety Report 25475750 (Version 1)
Quarter: 2025Q2

REPORT INFORMATION
  Report Type: Spontaneous
  Country: DE (occurrence: DE)
  Receive Date: 20250624
  Receipt Date: 20250624
  Transmission Date: 20250717
  Serious: Yes (Hospitalization)
  Sender: ABBVIE
  Company Number: DE-ABBOTT-2025A-1400277

PATIENT
  Sex: Male

DRUGS (2)
  1. PANCRELIPASE [Suspect]
     Active Substance: PANCRELIPASE
     Indication: Product used for unknown indication
     Route: 058
  2. MORPHINE [Suspect]
     Active Substance: MORPHINE
     Indication: Product used for unknown indication
     Route: 065

REACTIONS (2)
  - Diarrhoea [Unknown]
  - Weight decreased [Unknown]
